FAERS Safety Report 8787854 (Version 1)
Quarter: 2012Q4

REPORT INFORMATION
  Report Type: 
  Country: US (occurrence: US)
  Receive Date: 20120914
  Receipt Date: 20120914
  Transmission Date: 20130627
  Serious: No
  Sender: FDA-Public Use
  Company Number: US-VERTEX PHARMACEUTICAL INC.-AE-2012-005435

PATIENT
  Age: 60 None
  Sex: Female
  Weight: 86.36 kg

DRUGS (10)
  1. INCIVEK [Suspect]
     Indication: HEPATITIS C
     Route: 048
     Dates: start: 20120413
  2. PEGASYS [Concomitant]
     Indication: HEPATITIS C
     Route: 058
     Dates: start: 20120413
  3. RIBAVIRIN [Concomitant]
     Indication: HEPATITIS C
     Dates: start: 20120413
  4. RIBAVIRIN [Concomitant]
     Route: 048
  5. RIBAVIRIN [Concomitant]
  6. HCTZ [Concomitant]
     Indication: HYPERTENSION
  7. LEVOTHYROXINE [Concomitant]
     Indication: HYPOTHYROIDISM
     Route: 048
  8. LEVOTHYROXINE [Concomitant]
  9. HYDROXYZ HCL [Concomitant]
  10. PROCRIT [Concomitant]

REACTIONS (15)
  - White blood cell count decreased [Unknown]
  - Influenza like illness [Unknown]
  - Headache [Unknown]
  - Insomnia [Unknown]
  - Joint swelling [Recovered/Resolved]
  - Chills [Recovered/Resolved]
  - Injection site swelling [Not Recovered/Not Resolved]
  - Injection site erythema [Not Recovered/Not Resolved]
  - Contusion [Unknown]
  - Irritability [Unknown]
  - Rash papular [Unknown]
  - Haemoglobin decreased [Unknown]
  - Pruritus [Unknown]
  - Dysgeusia [Unknown]
  - Nausea [Unknown]
